FAERS Safety Report 20696292 (Version 1)
Quarter: 2022Q2

REPORT INFORMATION
  Report Type: Spontaneous
  Country: US (occurrence: None)
  Receive Date: 20220409
  Receipt Date: 20220409
  Transmission Date: 20220720
  Serious: Yes (Hospitalization)
  Sender: FDA-Public Use
  Company Number: None

PATIENT
  Age: 34 Year
  Sex: Male
  Weight: 115.9 kg

DRUGS (14)
  1. SPRYCEL [Suspect]
     Active Substance: DASATINIB
     Dates: end: 20220222
  2. PREDNISONE [Suspect]
     Active Substance: PREDNISONE
     Dates: end: 20220222
  3. ACYCLOVIR [Concomitant]
     Active Substance: ACYCLOVIR
  4. ALLOPURINOL [Concomitant]
     Active Substance: ALLOPURINOL
  5. AMITRIPTYLINE [Concomitant]
     Active Substance: AMITRIPTYLINE
  6. CYCLOBENZAPRINE [Concomitant]
     Active Substance: CYCLOBENZAPRINE
  7. DRONABINOL [Concomitant]
     Active Substance: DRONABINOL
  8. DURAGESIC [Concomitant]
     Active Substance: FENTANYL
  9. FLUCONAZOLE [Concomitant]
     Active Substance: FLUCONAZOLE
  10. GABAPENTIN [Concomitant]
     Active Substance: GABAPENTIN
  11. HYDROMORPHONE [Concomitant]
     Active Substance: HYDROMORPHONE
  12. LEVOFLOXACIN [Concomitant]
     Active Substance: LEVOFLOXACIN
  13. SERTRALINE [Concomitant]
     Active Substance: SERTRALINE HYDROCHLORIDE
  14. Sulfamethoxazole-trmethoprim [Concomitant]

REACTIONS (5)
  - Rash [None]
  - Rash [None]
  - Rash [None]
  - Rash [None]
  - Rash [None]

NARRATIVE: CASE EVENT DATE: 20220222
